FAERS Safety Report 20891574 (Version 1)
Quarter: 2022Q2

REPORT INFORMATION
  Report Type: Spontaneous
  Country: US (occurrence: US)
  Receive Date: 20220530
  Receipt Date: 20220530
  Transmission Date: 20220721
  Serious: No
  Sender: FDA-Public Use
  Company Number: US-TARO PHARMACEUTICALS USA INC.-2021TAR00805

PATIENT

DRUGS (1)
  1. TAZAROTENE [Suspect]
     Active Substance: TAZAROTENE
     Indication: Product used for unknown indication
     Dosage: CONTAINER SIZE: 30G
     Route: 065

REACTIONS (2)
  - Seborrhoea [Unknown]
  - Drug ineffective [Unknown]
